FAERS Safety Report 18737305 (Version 1)
Quarter: 2021Q1

REPORT INFORMATION
  Report Type: Spontaneous
  Country: FR (occurrence: FR)
  Receive Date: 20210113
  Receipt Date: 20210113
  Transmission Date: 20210419
  Serious: Yes (Congenital Anomaly)
  Sender: FDA-Public Use
  Company Number: FR-BIOGEN-2021BI00964898

PATIENT

DRUGS (2)
  1. RITUXIMAB. [Suspect]
     Active Substance: RITUXIMAB
     Indication: MATERNAL EXPOSURE TIMING UNSPECIFIED
     Route: 065
     Dates: start: 2017, end: 201910
  2. TYSABRI [Suspect]
     Active Substance: NATALIZUMAB
     Indication: MATERNAL EXPOSURE TIMING UNSPECIFIED
     Route: 042
     Dates: start: 201912

REACTIONS (1)
  - Anaemia neonatal [Recovered/Resolved]
